FAERS Safety Report 8849690 (Version 3)
Quarter: 2013Q4

REPORT INFORMATION
  Report Type: Spontaneous
  Country: US (occurrence: None)
  Receive Date: 20120426
  Receipt Date: 20131226
  Transmission Date: 20140711
  Serious: Yes (Other)
  Sender: FDA-Public Use
  Company Number: PHEH2012US004441

PATIENT
  Age: 53 Year
  Sex: Female

DRUGS (2)
  1. GILENYA (FTY) CAPSULE, 0.5MG [Suspect]
     Indication: MULTIPLE SCLEROSIS
     Route: 048
     Dates: start: 20120209
  2. STEROIDS NOS (NO INGREDIENTS/SUBSTAMCES) [Concomitant]

REACTIONS (7)
  - Fatigue [None]
  - Fall [None]
  - Asthenia [None]
  - Overdose [None]
  - Balance disorder [None]
  - Accidental overdose [None]
  - Product physical issue [None]
